FAERS Safety Report 9954033 (Version 2)
Quarter: 2014Q1

REPORT INFORMATION
  Report Type: Spontaneous
  Country: US (occurrence: US)
  Receive Date: 20140304
  Receipt Date: 20140320
  Transmission Date: 20141002
  Serious: Yes (Other)
  Sender: FDA-Public Use
  Company Number: US-PFIZER INC-2014059194

PATIENT
  Age: 75 Year
  Sex: Male
  Weight: 97 kg

DRUGS (10)
  1. SUTENT [Suspect]
     Dosage: 50 MG, DAILY
     Dates: start: 20140214
  2. NORCO [Concomitant]
     Indication: PAIN
     Dosage: UNK, AS NEEDED
  3. METOPROLOL [Concomitant]
     Dosage: 50 MG, UNK
  4. LIPITOR [Concomitant]
     Dosage: UNK
  5. LOSARTAN [Concomitant]
     Dosage: UNK
  6. GLIMEPIRIDE [Concomitant]
     Dosage: 2 MG, UNK
  7. ACTOS [Concomitant]
     Dosage: 30 MG, UNK
  8. LASIX [Concomitant]
     Dosage: UNK
  9. ASPIRIN [Concomitant]
     Dosage: 81 MG, 2X/DAY
  10. VITAMIN E [Concomitant]
     Dosage: UNK

REACTIONS (1)
  - Tooth abscess [Unknown]
